FAERS Safety Report 4507200-0 (Version None)
Quarter: 2004Q4

REPORT INFORMATION
  Report Type: 
  Country: None (occurrence: None)
  Receive Date: 20041025
  Receipt Date: 20040520
  Transmission Date: 20050328
  Serious: Yes (Other)
  Sender: FDA-Public Use
  Company Number: US-JNJFOC-20040505117

PATIENT
  Age: 69 Year
  Sex: Female

DRUGS (8)
  1. INFLIXIMAB (INFLIXIMAB, RECOMBINANT) LYOPHILIZED POWDER [Suspect]
     Indication: RHEUMATOID ARTHRITIS
     Dosage: INTRAVENOUS
     Route: 042
     Dates: start: 20010604
  2. METHOTREXATE [Concomitant]
  3. PREDNISONE [Concomitant]
  4. CELEBREX [Concomitant]
  5. FOLIC ACID [Concomitant]
  6. TYLENOL [Concomitant]
  7. MULTIVITAMIN (MULTIVITAMINS) [Concomitant]
  8. NASA SPRAY (NASAL DESCONGESTANTS FOR SYSTEMIC USE) [Concomitant]

REACTIONS (1)
  - DYSPNOEA [None]
